FAERS Safety Report 4276400-X (Version None)
Quarter: 2004Q1

REPORT INFORMATION
  Report Type: 
  Country: None (occurrence: None)
  Receive Date: 20040121
  Receipt Date: 20040116
  Transmission Date: 20041129
  Serious: Yes (Other)
  Sender: FDA-Public Use
  Company Number: PHBS2004CA00955

PATIENT
  Age: 39 Year
  Sex: Female

DRUGS (1)
  1. CAFERGOT [Suspect]
     Route: 048

REACTIONS (2)
  - INTESTINAL ISCHAEMIA [None]
  - MUSCLE SPASMS [None]
